FAERS Safety Report 5658371-4 (Version None)
Quarter: 2008Q1

REPORT INFORMATION
  Report Type: 
  Country: None (occurrence: None)
  Receive Date: 20080310
  Receipt Date: 20070205
  Transmission Date: 20080703
  Serious: No
  Sender: FDA-Public Use
  Company Number: US-BAYER-200710405BCC

PATIENT
  Age: 91 Year
  Sex: Female
  Weight: 64 kg

DRUGS (7)
  1. ALEVE [Suspect]
     Indication: OSTEOARTHRITIS
     Dosage: TOTAL DAILY DOSE: 220 MG  UNIT DOSE: 220 MG
     Route: 048
     Dates: start: 20070204
  2. NORVASC [Concomitant]
  3. ATENOLOL [Concomitant]
  4. LASIX [Concomitant]
  5. SYNTHROID [Concomitant]
  6. PRECOSE [Concomitant]
  7. HUMULIN N [Concomitant]

REACTIONS (1)
  - SOMNOLENCE [None]
